FAERS Safety Report 23822463 (Version 1)
Quarter: 2024Q2

REPORT INFORMATION
  Report Type: Spontaneous
  Country: US (occurrence: None)
  Receive Date: 20240504
  Receipt Date: 20240504
  Transmission Date: 20240717
  Serious: Yes (Hospitalization)
  Sender: FDA-Public Use
  Company Number: None

PATIENT
  Age: 72 Year
  Sex: Male
  Weight: 73.9 kg

DRUGS (1)
  1. TRAZODONE HCL [Suspect]
     Active Substance: TRAZODONE HYDROCHLORIDE
     Indication: Insomnia
     Dosage: 50 MG EVERY DAY PO?
     Route: 048
     Dates: start: 20240301, end: 20240311

REACTIONS (5)
  - Tremor [None]
  - Chills [None]
  - Urinary tract infection [None]
  - Acute kidney injury [None]
  - Myoclonus [None]

NARRATIVE: CASE EVENT DATE: 20240310
